FAERS Safety Report 8813576 (Version 3)
Quarter: 2012Q4

REPORT INFORMATION
  Report Type: 
  Country: US (occurrence: US)
  Receive Date: 20120927
  Receipt Date: 20121224
  Transmission Date: 20130627
  Serious: Yes (Hospitalization, Other)
  Sender: FDA-Public Use
  Company Number: US-AMGEN-USASP2012039640

PATIENT
  Age: 89 Year
  Sex: Female
  Weight: 50.79 kg

DRUGS (3)
  1. PROLIA [Suspect]
     Indication: OSTEOPOROSIS
     Dosage: 60 mg, q6mo
     Dates: start: 2011
  2. PROLIA [Suspect]
     Indication: OSTEOPOROSIS POSTMENOPAUSAL
  3. GABAPENTIN [Concomitant]
     Dosage: UNK
     Dates: end: 201201

REACTIONS (18)
  - Blister infected [Not Recovered/Not Resolved]
  - Wound secretion [Not Recovered/Not Resolved]
  - Deafness [Not Recovered/Not Resolved]
  - Cerumen impaction [Not Recovered/Not Resolved]
  - Pain [Not Recovered/Not Resolved]
  - Thirst [Not Recovered/Not Resolved]
  - Musculoskeletal stiffness [Not Recovered/Not Resolved]
  - Memory impairment [Not Recovered/Not Resolved]
  - Eye disorder [Not Recovered/Not Resolved]
  - Neuralgia [Not Recovered/Not Resolved]
  - Micturition urgency [Not Recovered/Not Resolved]
  - Sleep disorder [Not Recovered/Not Resolved]
  - Hypoalbuminaemia [Unknown]
  - Weight decreased [Recovering/Resolving]
  - Back pain [Not Recovered/Not Resolved]
  - Oedema peripheral [Not Recovered/Not Resolved]
  - Herpes zoster [Not Recovered/Not Resolved]
  - Drug hypersensitivity [Unknown]
